FAERS Safety Report 6464147-0 (Version None)
Quarter: 2009Q4

REPORT INFORMATION
  Report Type: 
  Country: None (occurrence: None)
  Receive Date: 20091130
  Receipt Date: 20091130
  Transmission Date: 20100525
  Serious: Yes (Other)
  Sender: FDA-Public Use
  Company Number: None

PATIENT
  Age: 38 Year
  Sex: Female
  Weight: 83.0083 kg

DRUGS (2)
  1. TRI LO SPRINTEC [Suspect]
     Indication: ACNE
     Dosage: 1XDAILY
     Dates: start: 20091125, end: 20091127
  2. TRI LO SPRINTEC [Suspect]
     Indication: OVARIAN CYST
     Dosage: 1XDAILY
     Dates: start: 20091125, end: 20091127

REACTIONS (4)
  - ANXIETY [None]
  - FEAR [None]
  - HEART RATE INCREASED [None]
  - INSOMNIA [None]
